FAERS Safety Report 7081552-2 (Version None)
Quarter: 2010Q4

REPORT INFORMATION
  Report Type: 
  Country: None (occurrence: None)
  Receive Date: 20101103
  Receipt Date: 20101101
  Transmission Date: 20110411
  Serious: Yes (Other)
  Sender: FDA-Public Use
  Company Number: US-WATSON-2010-14331

PATIENT
  Age: 81 Year
  Sex: Female
  Weight: 58.957 kg

DRUGS (1)
  1. ALENDRONATE SODIUM [Suspect]
     Indication: OSTEOPOROSIS
     Dosage: 70 MG, 1/WEEK (^TAKING FOSAMAX FOR OVER 10 YEARS^)
     Route: 048
     Dates: start: 20000101, end: 20100901

REACTIONS (5)
  - CLOSTRIDIUM DIFFICILE COLITIS [None]
  - DIARRHOEA [None]
  - DYSPHAGIA [None]
  - GASTRITIS [None]
  - OESOPHAGEAL SQUAMOUS CELL CARCINOMA [None]
